FAERS Safety Report 20965892 (Version 1)
Quarter: 2022Q2

REPORT INFORMATION
  Report Type: Report from Study
  Country: US (occurrence: US)
  Receive Date: 20220616
  Receipt Date: 20220616
  Transmission Date: 20220721
  Serious: Yes (Hospitalization)
  Sender: FDA-Public Use
  Company Number: US-SUN PHARMACEUTICAL INDUSTRIES LTD-2022R1-340956

PATIENT
  Age: 77 Year
  Sex: Male

DRUGS (20)
  1. DOXEPIN [Suspect]
     Active Substance: DOXEPIN
     Indication: Agitation
     Dosage: UNK
     Route: 065
  2. DOXEPIN [Suspect]
     Active Substance: DOXEPIN
     Indication: Psychotic symptom
  3. GABAPENTIN [Suspect]
     Active Substance: GABAPENTIN
     Indication: Agitation
     Dosage: UNK
     Route: 065
  4. GABAPENTIN [Suspect]
     Active Substance: GABAPENTIN
     Indication: Psychotic symptom
  5. GALANTAMINE [Suspect]
     Active Substance: GALANTAMINE
     Indication: Agitation
     Dosage: UNK
     Route: 065
  6. GALANTAMINE [Suspect]
     Active Substance: GALANTAMINE
     Indication: Psychotic symptom
  7. OLANZAPINE [Suspect]
     Active Substance: OLANZAPINE
     Indication: Agitation
     Dosage: UNK
     Route: 065
  8. OLANZAPINE [Suspect]
     Active Substance: OLANZAPINE
     Indication: Psychotic symptom
  9. OXCARBAZEPINE [Suspect]
     Active Substance: OXCARBAZEPINE
     Indication: Agitation
     Dosage: UNK
     Route: 065
  10. OXCARBAZEPINE [Suspect]
     Active Substance: OXCARBAZEPINE
     Indication: Psychotic symptom
  11. QUETIAPINE [Suspect]
     Active Substance: QUETIAPINE
     Indication: Agitation
     Dosage: UNK
     Route: 065
  12. QUETIAPINE [Suspect]
     Active Substance: QUETIAPINE
     Indication: Psychotic symptom
  13. RISPERIDONE [Suspect]
     Active Substance: RISPERIDONE
     Indication: Agitation
     Dosage: UNK
     Route: 065
  14. RISPERIDONE [Suspect]
     Active Substance: RISPERIDONE
     Indication: Psychotic symptom
  15. TEMAZEPAM [Suspect]
     Active Substance: TEMAZEPAM
     Indication: Agitation
     Dosage: UNK
     Route: 065
  16. TEMAZEPAM [Suspect]
     Active Substance: TEMAZEPAM
     Indication: Psychotic symptom
  17. VALPROIC ACID [Suspect]
     Active Substance: VALPROIC ACID
     Indication: Agitation
     Dosage: UNK
     Route: 065
  18. VALPROIC ACID [Suspect]
     Active Substance: VALPROIC ACID
     Indication: Psychotic symptom
  19. ZIPRASIDONE [Suspect]
     Active Substance: ZIPRASIDONE
     Indication: Agitation
     Dosage: UNK
     Route: 065
  20. ZIPRASIDONE [Suspect]
     Active Substance: ZIPRASIDONE
     Indication: Psychotic symptom

REACTIONS (1)
  - Treatment failure [Unknown]
